FAERS Safety Report 23069634 (Version 1)
Quarter: 2023Q4

REPORT INFORMATION
  Report Type: Spontaneous
  Country: GB (occurrence: GB)
  Receive Date: 20231016
  Receipt Date: 20231016
  Transmission Date: 20240109
  Serious: Yes (Other)
  Sender: FDA-Public Use
  Company Number: GB-PHARMAAND-2023PHR00140

PATIENT
  Age: 70 Year
  Sex: Male
  Weight: 77 kg

DRUGS (6)
  1. PEGINTERFERON ALFA-2A [Suspect]
     Active Substance: PEGINTERFERON ALFA-2A
     Indication: Polycythaemia
     Dosage: UNK
     Dates: start: 20220720
  2. RILTOZINAMERAN\TOZINAMERAN [Suspect]
     Active Substance: RILTOZINAMERAN\TOZINAMERAN
     Dosage: DOSE 5
     Dates: start: 20230611, end: 20230611
  3. FAMTOZINAMERAN\TOZINAMERAN [Suspect]
     Active Substance: FAMTOZINAMERAN\TOZINAMERAN
     Dosage: DOSE 4C
     Dates: start: 20230925, end: 20230925
  4. ASPIRIN [Concomitant]
     Active Substance: ASPIRIN
     Indication: Polycythaemia
     Dosage: UNK
     Dates: start: 20180310
  5. LISINOPRIL [Concomitant]
     Active Substance: LISINOPRIL
     Indication: Hypertension
     Dosage: UNK
     Dates: start: 20150907
  6. HYDREA [Concomitant]
     Active Substance: HYDROXYUREA

REACTIONS (7)
  - Drug interaction [Unknown]
  - Night sweats [Unknown]
  - Chills [Unknown]
  - Influenza like illness [Recovering/Resolving]
  - Headache [Unknown]
  - Asthenia [Unknown]
  - Off label use [Unknown]

NARRATIVE: CASE EVENT DATE: 20230925
